FAERS Safety Report 9029409 (Version 2)
Quarter: 2013Q2

REPORT INFORMATION
  Report Type: Spontaneous
  Country: FR (occurrence: FR)
  Receive Date: 20130125
  Receipt Date: 20130618
  Transmission Date: 20140414
  Serious: Yes (Other)
  Sender: FDA-Public Use
  Company Number: FR-NOVOPROD-369225

PATIENT
  Age: 62 Year
  Sex: Male

DRUGS (17)
  1. NOVORAPID [Suspect]
     Indication: PRODUCT USED FOR UNKNOWN INDICATION
     Dosage: UNKNOWN
     Route: 058
  2. HEPARINE SODIQUE [Suspect]
     Indication: PRODUCT USED FOR UNKNOWN INDICATION
     Dosage: UNKNOWN
     Route: 058
     Dates: end: 20121210
  3. CELLCEPT /01275102/ [Suspect]
     Indication: RENAL TRANSPLANT
     Dosage: UNKNOWN
     Route: 065
     Dates: start: 201211, end: 20121211
  4. ADVAGRAF [Suspect]
     Indication: RENAL TRANSPLANT
     Dosage: UNKNOWN
     Route: 048
     Dates: start: 201211
  5. BACTRIM [Suspect]
     Indication: PRODUCT USED FOR UNKNOWN INDICATION
     Dosage: UNKNOWN
     Route: 065
     Dates: start: 201211, end: 20121211
  6. BETAHISTINE [Suspect]
     Indication: PRODUCT USED FOR UNKNOWN INDICATION
     Dosage: UNKNOWN
     Route: 048
     Dates: end: 20121215
  7. INEXIUM /01479302/ [Suspect]
     Indication: PRODUCT USED FOR UNKNOWN INDICATION
     Dosage: UNKNOWN
     Route: 048
     Dates: start: 201211, end: 20121215
  8. SERESTA [Suspect]
     Indication: PRODUCT USED FOR UNKNOWN INDICATION
     Dosage: UNKNOWN
     Route: 048
  9. TAHOR [Suspect]
     Indication: PRODUCT USED FOR UNKNOWN INDICATION
     Dosage: UNKNOWN
     Route: 048
  10. CORTANCYL [Suspect]
     Indication: PRODUCT USED FOR UNKNOWN INDICATION
     Dosage: UNKNOWN
     Route: 048
     Dates: start: 201211
  11. ARANESP [Concomitant]
     Dosage: UNKNOWN
     Route: 065
  12. CALCIDOSE                          /00944201/ [Concomitant]
     Dosage: UNKNOWN
     Route: 065
  13. CONTRAMAL [Concomitant]
     Dosage: UNKNOWN
     Route: 065
     Dates: start: 20121211, end: 20121211
  14. KAYEXALATE [Concomitant]
     Dosage: UNKNOWN
     Route: 065
  15. LEDERFOLINE [Concomitant]
     Dosage: UNKNOWN
     Route: 065
  16. ZYMAD [Concomitant]
     Dosage: DOSE EVERY TWO MONTHS
  17. ACUPAN [Concomitant]
     Dosage: UNKNOWN
     Route: 065
     Dates: start: 20121212

REACTIONS (1)
  - Thrombocytopenia [Recovered/Resolved]
